FAERS Safety Report 12744927 (Version 1)
Quarter: 2016Q3

REPORT INFORMATION
  Report Type: Report from Study
  Country: EG (occurrence: EG)
  Receive Date: 20160915
  Receipt Date: 20160915
  Transmission Date: 20161109
  Serious: Yes (Death, Hospitalization)
  Sender: FDA-Public Use
  Company Number: EG-ROCHE-1829308

PATIENT
  Age: 39 Year
  Sex: Female
  Weight: 102 kg

DRUGS (2)
  1. TRASTUZUMAB [Suspect]
     Active Substance: TRASTUZUMAB
     Route: 042
     Dates: start: 20090703, end: 20091023
  2. TRASTUZUMAB [Suspect]
     Active Substance: TRASTUZUMAB
     Indication: HER-2 POSITIVE BREAST CANCER
     Route: 042

REACTIONS (5)
  - Hypotension [Fatal]
  - Depression [Fatal]
  - Hepatic enzyme increased [Fatal]
  - Metastases to central nervous system [Not Recovered/Not Resolved]
  - Hyperglycaemia [Fatal]

NARRATIVE: CASE EVENT DATE: 20090820
